FAERS Safety Report 5307592-9 (Version None)
Quarter: 2007Q2

REPORT INFORMATION
  Report Type: 
  Country: None (occurrence: None)
  Receive Date: 20070425
  Receipt Date: 20070413
  Transmission Date: 20071010
  Serious: Yes (Hospitalization)
  Sender: FDA-Public Use
  Company Number: FR-PFIZER INC-2007030749

PATIENT
  Age: 64 Year
  Sex: Male

DRUGS (2)
  1. TAHOR [Suspect]
  2. FUCIDINE CAP [Concomitant]

REACTIONS (3)
  - ILL-DEFINED DISORDER [None]
  - PAIN [None]
  - RHABDOMYOLYSIS [None]
